FAERS Safety Report 9507303 (Version 1)
Quarter: 2013Q1

REPORT INFORMATION
  Report Type: Spontaneous
  Country: US (occurrence: None)
  Receive Date: 20130305
  Receipt Date: 20130305
  Transmission Date: 20140127
  Serious: Yes (Other)
  Sender: FDA-Public Use
  Company Number: 163-21880-12050022

PATIENT
  Age: 57 Year
  Sex: Female
  Weight: 72.94 kg

DRUGS (4)
  1. REVLIMID (LENALIDOMIDE) (5 MILLIGRAM, CAPSULES) [Suspect]
     Indication: PLASMA CELL MYELOMA
     Dosage: 5 IN 1 D
     Route: 048
     Dates: start: 200904, end: 2009
  2. ACYCLOVIR (ACICLOVIR) (ACICLOVIR) [Concomitant]
  3. BABY ASPIRIN (ACETYLSALICYLIC ACID) [Concomitant]
  4. LIPITOR (ATORVASTATIN) [Concomitant]

REACTIONS (1)
  - Cataract [None]
